FAERS Safety Report 8481033-5 (Version None)
Quarter: 2012Q3

REPORT INFORMATION
  Report Type: 
  Country: None (occurrence: None)
  Receive Date: 20120702
  Receipt Date: 20120625
  Transmission Date: 20120928
  Serious: Yes (Hospitalization, Other)
  Sender: FDA-Public Use
  Company Number: PHHY2012EC055749

PATIENT
  Sex: Female

DRUGS (1)
  1. EXFORGE HCT [Suspect]
     Indication: HYPERTENSION
     Dosage: 1 DF (160/5/12.5MG), DAILY
     Dates: start: 20080808

REACTIONS (2)
  - BENIGN NEOPLASM [None]
  - VISUAL IMPAIRMENT [None]
